FAERS Safety Report 17629727 (Version 1)
Quarter: 2020Q2

REPORT INFORMATION
  Report Type: Spontaneous
  Country: US (occurrence: US)
  Receive Date: 20200404
  Receipt Date: 20200404
  Transmission Date: 20200713
  Serious: Yes (Death)
  Sender: FDA-Public Use
  Company Number: None

PATIENT
  Age: 60 Year
  Sex: Female

DRUGS (7)
  1. CAPECITABINE. [Concomitant]
     Active Substance: CAPECITABINE
  2. MORPHINE SUL [Concomitant]
     Active Substance: MORPHINE SULFATE
  3. AVASTIN [Concomitant]
     Active Substance: BEVACIZUMAB
  4. VITAMIN D [Concomitant]
     Active Substance: VITAMIN D NOS
  5. ENOXAPARIN [Suspect]
     Active Substance: ENOXAPARIN
     Indication: PULMONARY EMBOLISM
     Route: 058
     Dates: start: 20180402, end: 20200306
  6. DILANTIN [Concomitant]
     Active Substance: PHENYTOIN
  7. ZOFRAN [Concomitant]
     Active Substance: ONDANSETRON HYDROCHLORIDE

REACTIONS (1)
  - Death [None]

NARRATIVE: CASE EVENT DATE: 20200306
